FAERS Safety Report 4773709-8 (Version None)
Quarter: 2005Q3

REPORT INFORMATION
  Report Type: 
  Country: None (occurrence: None)
  Receive Date: 20050914
  Receipt Date: 20050715
  Transmission Date: 20060218
  Serious: Yes (Other)
  Sender: FDA-Public Use
  Company Number: 411181

PATIENT
  Age: 63 Year
  Sex: Female
  Weight: 71.7 kg

DRUGS (9)
  1. BONIVA [Suspect]
     Indication: OSTEOPOROSIS
     Dosage: 150MG 1 PER MONTH ORAL
     Route: 048
     Dates: start: 20050715
  2. INSULIN [Concomitant]
  3. ZOCOR [Concomitant]
  4. TOPROL (METOPROLOL SUCCINATE) [Concomitant]
  5. DIOVAN [Concomitant]
  6. CITRACAL (CALCIUM CITRATE) [Concomitant]
  7. EVISTA [Concomitant]
  8. SYNTHROID [Concomitant]
  9. ASPIRIN [Concomitant]

REACTIONS (1)
  - BLOOD GLUCOSE DECREASED [None]
